FAERS Safety Report 7064452-3 (Version None)
Quarter: 2010Q4

REPORT INFORMATION
  Report Type: 
  Country: None (occurrence: None)
  Receive Date: 20101027
  Receipt Date: 20101019
  Transmission Date: 20110411
  Serious: Yes (Other)
  Sender: FDA-Public Use
  Company Number: US-PFIZER INC-2010133348

PATIENT
  Sex: Male
  Weight: 72.562 kg

DRUGS (5)
  1. XALATAN [Suspect]
     Indication: GLAUCOMA
     Dosage: 2 GTT, 1X/DAY
  2. DORZOLAMIDE [Suspect]
     Dosage: UNK
  3. BRIMONIDINE [Suspect]
     Dosage: UNK
  4. PROPECIA [Concomitant]
     Dosage: UNK
  5. MECLIZINE [Concomitant]
     Dosage: UNK

REACTIONS (4)
  - DIPLOPIA [None]
  - DRUG HYPERSENSITIVITY [None]
  - RASH [None]
  - RETINAL DETACHMENT [None]
